FAERS Safety Report 7439561-7 (Version None)
Quarter: 2011Q2

REPORT INFORMATION
  Report Type: 
  Country: None (occurrence: None)
  Receive Date: 20110427
  Receipt Date: 20110425
  Transmission Date: 20111010
  Serious: Yes (Other)
  Sender: FDA-Public Use
  Company Number: US-PFIZER INC-2011089064

PATIENT
  Sex: Female
  Weight: 86.168 kg

DRUGS (8)
  1. PROTONIX [Suspect]
     Indication: GASTROINTESTINAL MOTILITY DISORDER
     Dosage: 40 MG, 2X/DAY
     Route: 048
     Dates: start: 20060101, end: 20110401
  2. PROTONIX [Suspect]
     Indication: GASTROOESOPHAGEAL REFLUX DISEASE
     Dosage: UNK
     Dates: start: 20110423
  3. HYDROCHLOROTHIAZIDE [Concomitant]
     Indication: BLOOD PRESSURE ABNORMAL
     Dosage: 12.5 MG, 1X/DAY
  4. PROTONIX [Suspect]
     Dosage: 40 MG, 2X/DAY
     Route: 048
     Dates: start: 20110421, end: 20110423
  5. PROTONIX [Suspect]
  6. PROTONIX [Suspect]
     Indication: OESOPHAGEAL DISORDER
  7. PROTONIX [Suspect]
  8. IMIPRAMINE [Concomitant]
     Indication: GASTROOESOPHAGEAL REFLUX DISEASE
     Dosage: 20 MG, 1X/DAY

REACTIONS (4)
  - GASTRIC HYPOMOTILITY [None]
  - ERUCTATION [None]
  - IMPAIRED GASTRIC EMPTYING [None]
  - DRUG INEFFECTIVE [None]
